FAERS Safety Report 8055463-X (Version None)
Quarter: 2012Q1

REPORT INFORMATION
  Report Type: 
  Country: None (occurrence: None)
  Receive Date: 20120119
  Receipt Date: 20120112
  Transmission Date: 20120608
  Serious: Yes (Other)
  Sender: FDA-Public Use
  Company Number: SE-SANOFI-AVENTIS-2012SA002147

PATIENT
  Age: 31 Year
  Sex: Male

DRUGS (1)
  1. ZOLPIDEM [Suspect]
     Route: 065

REACTIONS (3)
  - ROAD TRAFFIC ACCIDENT [None]
  - DRUG ABUSER [None]
  - CRIME [None]
